FAERS Safety Report 7611035-X (Version None)
Quarter: 2011Q3

REPORT INFORMATION
  Report Type: 
  Country: None (occurrence: None)
  Receive Date: 20110715
  Receipt Date: 20110712
  Transmission Date: 20111222
  Serious: Yes (Other)
  Sender: FDA-Public Use
  Company Number: US-PFIZER INC-2011117012

PATIENT
  Sex: Female

DRUGS (2)
  1. GEODON [Suspect]
     Dosage: 40 MG, 2X/DAY
  2. ZOLOFT [Suspect]
     Dosage: 100 MG, 1X/DAY

REACTIONS (2)
  - OSTEOARTHRITIS [None]
  - MENTAL DISORDER [None]
